FAERS Safety Report 7865699-6 (Version None)
Quarter: 2011Q4

REPORT INFORMATION
  Report Type: 
  Country: None (occurrence: None)
  Receive Date: 20111028
  Receipt Date: 20110209
  Transmission Date: 20120403
  Serious: Yes (Other)
  Sender: FDA-Public Use
  Company Number: US-GLAXOSMITHKLINE-A0912700A

PATIENT
  Age: 69 Year
  Sex: Female

DRUGS (6)
  1. FISH OIL [Concomitant]
  2. CODEINE SULFATE [Concomitant]
  3. PREVACID [Concomitant]
  4. ADVAIR DISKUS 100/50 [Suspect]
     Indication: ASTHMA
     Dosage: 1PUFF TWICE PER DAY
     Route: 055
     Dates: start: 20100201
  5. GLUCOSAMINE [Concomitant]
  6. AMOXICILLIN [Concomitant]

REACTIONS (4)
  - PNEUMONIA [None]
  - SINUSITIS [None]
  - DYSPNOEA [None]
  - COUGH [None]
